FAERS Safety Report 18946350 (Version 1)
Quarter: 2021Q1

REPORT INFORMATION
  Report Type: Report from Study
  Country: US (occurrence: US)
  Receive Date: 20210226
  Receipt Date: 20210226
  Transmission Date: 20210420
  Serious: No
  Sender: FDA-Public Use
  Company Number: US-BIOVITRUM-2021US1767

PATIENT
  Age: 73 Year
  Sex: Male

DRUGS (2)
  1. KINERET [Suspect]
     Active Substance: ANAKINRA
     Indication: CHONDROCALCINOSIS PYROPHOSPHATE
     Dosage: PRN FLARE X3 DAYS
     Route: 058
     Dates: start: 202008
  2. KINERET [Suspect]
     Active Substance: ANAKINRA
     Route: 058

REACTIONS (4)
  - Condition aggravated [Unknown]
  - Off label use [Unknown]
  - Chondrocalcinosis pyrophosphate [Unknown]
  - Joint swelling [Unknown]

NARRATIVE: CASE EVENT DATE: 202008
